FAERS Safety Report 7735357-7 (Version None)
Quarter: 2011Q3

REPORT INFORMATION
  Report Type: 
  Country: None (occurrence: None)
  Receive Date: 20110907
  Receipt Date: 20110829
  Transmission Date: 20111222
  Serious: Yes (Hospitalization)
  Sender: FDA-Public Use
  Company Number: US-ASTRAZENECA-2011SE52080

PATIENT
  Age: 61 Year
  Sex: Female
  Weight: 90.7 kg

DRUGS (3)
  1. SYNTHROID [Concomitant]
  2. SEROQUEL [Suspect]
     Dosage: TWICE A DAY
     Route: 048
  3. CALEHTER [Concomitant]

REACTIONS (2)
  - DRUG DOSE OMISSION [None]
  - WEIGHT DECREASED [None]
